FAERS Safety Report 6614885-1 (Version None)
Quarter: 2010Q1

REPORT INFORMATION
  Report Type: 
  Country: None (occurrence: None)
  Receive Date: 20100305
  Receipt Date: 20100222
  Transmission Date: 20100710
  Serious: Yes (Hospitalization)
  Sender: FDA-Public Use
  Company Number: DE-BIOGENIDEC-2010BI005983

PATIENT
  Age: 55 Year
  Sex: Female
  Weight: 75 kg

DRUGS (4)
  1. AVONEX [Suspect]
     Indication: RELAPSING-REMITTING MULTIPLE SCLEROSIS
     Route: 030
     Dates: start: 20090601
  2. SERTRALIN [Concomitant]
     Indication: ANXIETY
     Dates: start: 20050101
  3. ISOPTIN [Concomitant]
     Indication: CORONARY ARTERY DISEASE
     Dates: start: 20040101
  4. AMITRIPTYLINE HCL [Concomitant]
     Indication: INSOMNIA
     Dates: start: 20000101

REACTIONS (1)
  - OPTIC NEURITIS [None]
